FAERS Safety Report 20382393 (Version 1)
Quarter: 2022Q1

REPORT INFORMATION
  Report Type: Spontaneous
  Country: US (occurrence: US)
  Receive Date: 20220127
  Receipt Date: 20220127
  Transmission Date: 20220423
  Serious: No
  Sender: FDA-Public Use
  Company Number: US-GW PHARMA-202201USGW00323

PATIENT

DRUGS (1)
  1. EPIDIOLEX [Suspect]
     Active Substance: CANNABIDIOL
     Indication: Lennox-Gastaut syndrome
     Dosage: 12.60 MG/KG/DAY, 120 MILLIGRAM, BID (DOSE INCREASED TO 180 MILLIGRAM, BID, WHICH WAS NOT SHIPPED YET
     Route: 048
     Dates: start: 202101

REACTIONS (2)
  - Seizure [Unknown]
  - Somnolence [Unknown]
